FAERS Safety Report 6491642-0 (Version None)
Quarter: 2009Q4

REPORT INFORMATION
  Report Type: 
  Country: None (occurrence: None)
  Receive Date: 20091207
  Receipt Date: 20091121
  Transmission Date: 20100525
  Serious: Yes (Hospitalization, Other)
  Sender: FDA-Public Use
  Company Number: AUR-APL-2009-01369

PATIENT
  Age: 69 Year
  Sex: Female

DRUGS (8)
  1. SIMVASTATIN [Suspect]
     Indication: SCHIZOPHRENIA
     Dosage: 20MG, DAILY, ORAL
     Route: 048
     Dates: start: 20050101
  2. CLOZARIL [Suspect]
     Indication: SCHIZOPHRENIA
     Dosage: 400MG, DAILY, ORAL
     Route: 048
     Dates: start: 19990120
  3. ACETYLSALICYLIC ACID SRT [Concomitant]
  4. FLUTICASONE PROPIONATE [Concomitant]
  5. METFORMIN HCL [Concomitant]
  6. OXYBUTYNIN CHLORIDE [Concomitant]
  7. QUETIAPINE [Concomitant]
  8. ALBUTEROL [Concomitant]

REACTIONS (5)
  - BLOOD ALKALINE PHOSPHATASE INCREASED [None]
  - CARDIAC ENZYMES INCREASED [None]
  - CHRONIC OBSTRUCTIVE PULMONARY DISEASE [None]
  - PERICARDIAL EFFUSION [None]
  - RESPIRATORY DISORDER [None]
